FAERS Safety Report 5251806-0 (Version None)
Quarter: 2007Q1

REPORT INFORMATION
  Report Type: 
  Country: None (occurrence: None)
  Receive Date: 20070223
  Receipt Date: 20070208
  Transmission Date: 20070707
  Serious: Yes (Other)
  Sender: FDA-Public Use
  Company Number: 1-14630411

PATIENT
  Sex: Male
  Weight: 3 kg

DRUGS (5)
  1. BUPHENYL [Suspect]
     Indication: AMINO ACID METABOLISM DISORDER
     Dosage: 450 MG/KG Q6H VIA NGT
     Dates: start: 20070207, end: 20070207
  2. AMMONUL (SODIUM PHENYLACETATE/SODIUM BENZOATE) [Concomitant]
  3. CITRULLINE [Concomitant]
  4. PHENOBARBITAL TAB [Concomitant]
  5. UNSPECIFIED ANTIEMETICS [Concomitant]

REACTIONS (6)
  - BLOOD TEST ABNORMAL [None]
  - HAEMODIALYSIS [None]
  - HEPATIC FAILURE [None]
  - INFANTILE SPITTING UP [None]
  - OVERDOSE [None]
  - UNRESPONSIVE TO STIMULI [None]
